FAERS Safety Report 6974514-4 (Version None)
Quarter: 2010Q3

REPORT INFORMATION
  Report Type: 
  Country: None (occurrence: None)
  Receive Date: 20100909
  Receipt Date: 20100909
  Transmission Date: 20110219
  Serious: No
  Sender: FDA-Public Use
  Company Number: None

PATIENT
  Sex: Female
  Weight: 75 kg

DRUGS (1)
  1. TARON C DHA CAP N/A TRIGEN LABORATORIES, INC., SAYREVILLE, NJ [Suspect]
     Indication: PRENATAL CARE
     Dosage: 1 CAPSULE DAILY ORALLY  (ONE TIME ONLY)
     Route: 048
     Dates: start: 20100901

REACTIONS (4)
  - DRUG EXPOSURE DURING PREGNANCY [None]
  - PETECHIAE [None]
  - PRODUCT SUBSTITUTION ISSUE [None]
  - VOMITING [None]
